FAERS Safety Report 8483446-4 (Version None)
Quarter: 2012Q3

REPORT INFORMATION
  Report Type: 
  Country: None (occurrence: None)
  Receive Date: 20120702
  Receipt Date: 20120626
  Transmission Date: 20120928
  Serious: Yes (Other)
  Sender: FDA-Public Use
  Company Number: AR-BAXTER-2010BH024704

PATIENT
  Sex: Male

DRUGS (2)
  1. ANTIHEMOPHILIC FACTOR (HUMAN) [Suspect]
     Route: 065
  2. ANTIHEMOPHILIC FACTOR (HUMAN) [Suspect]
     Route: 065

REACTIONS (1)
  - HEPATITIS C [None]
